FAERS Safety Report 6982080-2 (Version None)
Quarter: 2010Q3

REPORT INFORMATION
  Report Type: 
  Country: None (occurrence: None)
  Receive Date: 20100909
  Receipt Date: 20100831
  Transmission Date: 20110219
  Serious: Yes (Hospitalization, Disabling, Other)
  Sender: FDA-Public Use
  Company Number: ENT-2010-0160(1)

PATIENT
  Sex: Male

DRUGS (28)
  1. ENTACAPONE [Suspect]
     Dosage: 800 MG (200 MG,4 IN 1 D) ORAL
     Route: 048
     Dates: start: 20010101
  2. CARBABETA (CARBAMAZEPINE) [Suspect]
     Indication: EPILEPSY
     Dosage: 1600 MG (400 MG, 4 IN 1 D) ORAL, 1200 MG (400 MG, 3 IN 1 D) ORAL
     Route: 048
     Dates: start: 20020101
  3. LEVODOPA (LEVODOPA) [Suspect]
     Indication: PARKINSON'S DISEASE
     Dosage: ORAL, 200 MG (50 MG, 4 IN 1 D) ORAL
     Route: 048
     Dates: start: 19990101
  4. PERGOLIDE MESYLATE [Suspect]
     Indication: PARKINSON'S DISEASE
     Dosage: 0.20 MG/DAY/ORAL, 2 MG (0.5 MG, 4 IN 1 D) ORAL
     Route: 048
     Dates: start: 19960101, end: 19970101
  5. PERGOLIDE MESYLATE [Suspect]
     Indication: PARKINSON'S DISEASE
     Dosage: 0.20 MG/DAY/ORAL, 2 MG (0.5 MG, 4 IN 1 D) ORAL
     Route: 048
     Dates: start: 19970101
  6. AMANTADINE HCL [Suspect]
     Dosage: 300 MG, ORAL
     Route: 048
     Dates: start: 20010101
  7. TEGRETOL [Suspect]
     Indication: EPILEPSY
     Dosage: 400 MG QOD, ORAL
     Route: 048
     Dates: start: 19820101, end: 20020101
  8. TEGRETROL RETARD (CARBAMAZEPINE) [Concomitant]
     Indication: EPILEPSY
     Dosage: 1600 MG/D/ ORAL
     Route: 048
     Dates: start: 19850101
  9. MADOPAR (LEVODOPA) [Suspect]
     Indication: PARKINSON'S DISEASE
     Dosage: 187.5 MG (62.5 MG, 3 IN 1 D) ORAL
     Route: 048
     Dates: start: 19950101, end: 19990101
  10. MOVERGAN (SELEGILINE HYDROCHLORIDE) [Suspect]
     Indication: PARKINSON'S DISEASE
     Dosage: 1 DF/DAY/ORAL
     Route: 048
     Dates: start: 19960101
  11. TASMAR [Suspect]
     Dosage: ORAL
     Route: 048
     Dates: start: 19970101
  12. GABITRIL [Suspect]
     Dosage: 60 MG/DAY/ORAL
     Route: 048
     Dates: start: 19990101, end: 19990101
  13. TOPAMAX [Suspect]
     Dosage: 100 MG/DAY/ ORAL
     Route: 048
     Dates: start: 20000101
  14. ERGENYL (VALPROATE SODIUM) [Suspect]
  15. NEURONTIN [Suspect]
  16. L-DOPA (LEVODOPA) [Suspect]
  17. SELEGILINE [Concomitant]
  18. REMERGIL [Concomitant]
  19. ZENTROPIL [Concomitant]
  20. KEPPRA [Concomitant]
  21. LAMICTAL [Concomitant]
  22. NACOM [Concomitant]
  23. PHENHYDAN [Concomitant]
  24. LEVETIRACETAM [Concomitant]
  25. AMAN [Concomitant]
  26. CARBIDOPA AND LEVODOPA [Concomitant]
  27. PERGOLIDE [Concomitant]
  28. PRAMIPEXOLE [Concomitant]

REACTIONS (24)
  - APHASIA [None]
  - COORDINATION ABNORMAL [None]
  - DEPRESSION [None]
  - DRUG INTERACTION [None]
  - DRUG THERAPEUTIC INCOMPATIBILITY [None]
  - DYSKINESIA [None]
  - ELECTROENCEPHALOGRAM ABNORMAL [None]
  - ENCEPHALOPATHY [None]
  - ERECTILE DYSFUNCTION [None]
  - FALL [None]
  - GAIT DISTURBANCE [None]
  - LIVER FUNCTION TEST ABNORMAL [None]
  - MASKED FACIES [None]
  - MUSCLE SPASMS [None]
  - MUSCLE TWITCHING [None]
  - MYALGIA [None]
  - NERVE CONDUCTION STUDIES ABNORMAL [None]
  - NEUROLEPTIC MALIGNANT SYNDROME [None]
  - NUCLEAR MAGNETIC RESONANCE IMAGING BRAIN ABNORMAL [None]
  - PARALYSIS [None]
  - PARKINSON'S DISEASE [None]
  - PERFORMANCE STATUS DECREASED [None]
  - QUALITY OF LIFE DECREASED [None]
  - TREMOR [None]
